FAERS Safety Report 6193722-6 (Version None)
Quarter: 2009Q2

REPORT INFORMATION
  Report Type: 
  Country: None (occurrence: None)
  Receive Date: 20090518
  Receipt Date: 20090507
  Transmission Date: 20091009
  Serious: Yes (Hospitalization)
  Sender: FDA-Public Use
  Company Number: IT-WYE-H09340709

PATIENT
  Sex: Female

DRUGS (7)
  1. AMIODAR [Suspect]
     Route: 048
     Dates: start: 20090218, end: 20090301
  2. KANRENOL [Concomitant]
     Route: 048
  3. LANSOPRAZOLE [Concomitant]
  4. FELODAY [Concomitant]
     Route: 048
  5. RAMIPRIL [Suspect]
     Indication: ESSENTIAL HYPERTENSION
     Route: 048
     Dates: start: 20090218, end: 20090301
  6. RAMIPRIL [Suspect]
     Dosage: NOT PROVIDED
     Dates: start: 20090101
  7. TICLOPIDINE [Concomitant]

REACTIONS (8)
  - ALANINE AMINOTRANSFERASE INCREASED [None]
  - ASPARTATE AMINOTRANSFERASE INCREASED [None]
  - EYELID OEDEMA [None]
  - GAMMA-GLUTAMYLTRANSFERASE INCREASED [None]
  - HEPATIC ENZYME INCREASED [None]
  - RASH MORBILLIFORM [None]
  - SWOLLEN TONGUE [None]
  - TONGUE DISORDER [None]
